FAERS Safety Report 9674505 (Version 1)
Quarter: 2013Q4

REPORT INFORMATION
  Report Type: Spontaneous
  Country: GB (occurrence: GB)
  Receive Date: 20131107
  Receipt Date: 20131107
  Transmission Date: 20140711
  Serious: Yes (Other)
  Sender: FDA-Public Use
  Company Number: GB-DRREDDYS-GER/UKI/13/0035324

PATIENT
  Sex: 0

DRUGS (7)
  1. OLANZAPINE [Suspect]
     Indication: ANXIETY
     Route: 048
  2. OLANZAPINE [Suspect]
     Indication: PANIC ATTACK
     Route: 048
  3. OLANZAPINE [Suspect]
     Indication: TRIGEMINAL NEURALGIA
  4. OLANZAPINE [Suspect]
     Indication: FACIAL PAIN
  5. QUETIAPINE [Suspect]
     Indication: PRODUCT USED FOR UNKNOWN INDICATION
  6. VALIUM [Concomitant]
     Indication: PRODUCT USED FOR UNKNOWN INDICATION
  7. TEGRETOL [Concomitant]
     Indication: TEMPORAL LOBE EPILEPSY

REACTIONS (2)
  - Suicidal ideation [Unknown]
  - Syncope [Unknown]
